FAERS Safety Report 11196011 (Version 1)
Quarter: 2015Q2

REPORT INFORMATION
  Report Type: Spontaneous
  Country: US (occurrence: None)
  Receive Date: 20150616
  Receipt Date: 20150616
  Transmission Date: 20150821
  Serious: Yes (Other)
  Sender: FDA-Public Use
  Company Number: None

PATIENT

DRUGS (1)
  1. ZOLINZA [Suspect]
     Active Substance: VORINOSTAT
     Indication: LYMPHOMA
     Route: 048
     Dates: start: 20150213

REACTIONS (4)
  - Balance disorder [None]
  - Fatigue [None]
  - Neuropathy peripheral [None]
  - Dyspepsia [None]
